FAERS Safety Report 14024247 (Version 1)
Quarter: 2017Q3

REPORT INFORMATION
  Report Type: Spontaneous
  Country: US (occurrence: US)
  Receive Date: 20170928
  Receipt Date: 20170928
  Transmission Date: 20171128
  Serious: No
  Sender: FDA-Public Use
  Company Number: US-SA-2016SA235007

PATIENT
  Age: 49 Year
  Sex: Female
  Weight: 57 kg

DRUGS (29)
  1. TIZANIDINE. [Concomitant]
     Active Substance: TIZANIDINE
     Indication: MULTIPLE SCLEROSIS RELAPSE
     Dates: start: 2013
  2. NEURONTIN [Concomitant]
     Active Substance: GABAPENTIN
     Indication: FIBROMYALGIA
     Dates: start: 2007
  3. VITAMIN D/CALCIUM [Concomitant]
  4. TYSABRI [Concomitant]
     Active Substance: NATALIZUMAB
     Indication: MULTIPLE SCLEROSIS
     Dates: start: 2015, end: 20160809
  5. CYMBALTA [Concomitant]
     Active Substance: DULOXETINE HYDROCHLORIDE
     Indication: DEPRESSION
     Dates: start: 2009
  6. MELOXICAM. [Concomitant]
     Active Substance: MELOXICAM
     Dates: start: 2015
  7. BACLOFEN. [Concomitant]
     Active Substance: BACLOFEN
     Dates: start: 2016
  8. GLUCOSAMINE [Concomitant]
     Active Substance: GLUCOSAMINE
  9. VITAMIN B1 [Concomitant]
     Active Substance: THIAMINE HYDROCHLORIDE
  10. VITAMIN B6 [Concomitant]
     Active Substance: PYRIDOXINE HYDROCHLORIDE
  11. AUBAGIO [Suspect]
     Active Substance: TERIFLUNOMIDE
     Indication: RELAPSING-REMITTING MULTIPLE SCLEROSIS
     Route: 048
     Dates: start: 20160922
  12. SIMVASTATIN. [Concomitant]
     Active Substance: SIMVASTATIN
  13. CHONDROITIN [Concomitant]
     Active Substance: CHONDROITIN
  14. AMITRIPTYLINE [Concomitant]
     Active Substance: AMITRIPTYLINE
     Indication: DEPRESSION
     Dates: start: 2008
  15. CLONAZEPAM. [Concomitant]
     Active Substance: CLONAZEPAM
     Indication: ANXIETY
     Dates: start: 2009
  16. ESTRADIOL. [Concomitant]
     Active Substance: ESTRADIOL
     Dates: start: 2013
  17. ROPINIROLE. [Concomitant]
     Active Substance: ROPINIROLE
     Indication: MUSCLE SPASMS
     Dates: start: 2010
  18. VITAMIN A [Concomitant]
     Active Substance: VITAMIN A
  19. VITAMIN C [Concomitant]
     Active Substance: ASCORBIC ACID
  20. FLAX SEED [Concomitant]
     Active Substance: FLAX SEED
     Route: 065
  21. FISH OIL [Concomitant]
     Active Substance: FISH OIL
     Route: 065
  22. AUBAGIO [Suspect]
     Active Substance: TERIFLUNOMIDE
     Indication: RELAPSING-REMITTING MULTIPLE SCLEROSIS
     Route: 048
     Dates: start: 20160922
  23. AUBAGIO [Suspect]
     Active Substance: TERIFLUNOMIDE
     Indication: RELAPSING-REMITTING MULTIPLE SCLEROSIS
     Route: 048
     Dates: start: 20160922
  24. AMPYRA [Concomitant]
     Active Substance: DALFAMPRIDINE
     Dates: start: 2015
  25. OXYBUTYNIN [Concomitant]
     Active Substance: OXYBUTYNIN
     Indication: BLADDER DISORDER
     Dates: start: 2015
  26. VITAMIN B COMPLEX [Concomitant]
     Active Substance: CYANOCOBALAMIN\DEXPANTHENOL\NIACINAMIDE\PYRIDOXINE HYDROCHLORIDE\RIBOFLAVIN 5^-PHOSPHATE SODIUM\THIAMINE HYDROCHLORIDE\VITAMIN B COMPLEX
  27. TIZANIDINE. [Concomitant]
     Active Substance: TIZANIDINE
     Indication: MULTIPLE SCLEROSIS
     Dates: start: 2013
  28. VITAMIN D3 [Concomitant]
     Active Substance: CHOLECALCIFEROL
  29. VITAMIN E [Concomitant]
     Active Substance: .ALPHA.-TOCOPHEROL

REACTIONS (3)
  - Grip strength decreased [Not Recovered/Not Resolved]
  - Fall [Unknown]
  - Memory impairment [Not Recovered/Not Resolved]

NARRATIVE: CASE EVENT DATE: 20161205
